FAERS Safety Report 10312679 (Version 1)
Quarter: 2014Q3

REPORT INFORMATION
  Report Type: Spontaneous
  Country: US (occurrence: None)
  Receive Date: 20140717
  Receipt Date: 20140717
  Transmission Date: 20150326
  Serious: Yes (Death, Hospitalization)
  Sender: FDA-Public Use
  Company Number: None

PATIENT
  Age: 84 Year
  Sex: Female

DRUGS (1)
  1. COUMADIN [Suspect]
     Active Substance: WARFARIN SODIUM
     Indication: CEREBROVASCULAR ACCIDENT
     Dosage: I CAN GET THAT IF YOU NEED IT. ONCE DAILY, TAKEN BY MOUTH.
     Route: 048

REACTIONS (7)
  - Haemorrhage [None]
  - Pneumothorax traumatic [None]
  - Rib fracture [None]
  - Pain [None]
  - Osteoporosis [None]
  - Fall [None]
  - Blood pressure decreased [None]

NARRATIVE: CASE EVENT DATE: 20130820
